FAERS Safety Report 9051268 (Version 1)
Quarter: 2013Q1

REPORT INFORMATION
  Report Type: Report from Study
  Country: DE (occurrence: DE)
  Receive Date: 20130206
  Receipt Date: 20130206
  Transmission Date: 20140127
  Serious: Yes (Other)
  Sender: FDA-Public Use
  Company Number: DE-ASTELLAS-2013US001348

PATIENT
  Sex: Female

DRUGS (1)
  1. ERLOTINIB TABLET [Suspect]
     Indication: NON-SMALL CELL LUNG CANCER
     Dosage: 150 MG, UID/QD
     Route: 048
     Dates: start: 200701, end: 200802

REACTIONS (11)
  - Visual field defect [Unknown]
  - Thrombocytosis [Unknown]
  - Metastases to meninges [Unknown]
  - Metastases to central nervous system [Unknown]
  - Metastases to lung [Unknown]
  - Malignant neoplasm progression [Unknown]
  - Pain [Unknown]
  - General physical health deterioration [Unknown]
  - Carcinoembryonic antigen increased [Unknown]
  - Rash [Unknown]
  - Fatigue [Unknown]
